FAERS Safety Report 4505565-7 (Version None)
Quarter: 2004Q4

REPORT INFORMATION
  Report Type: 
  Country: None (occurrence: None)
  Receive Date: 20041025
  Receipt Date: 20031111
  Transmission Date: 20050328
  Serious: Yes (Other)
  Sender: FDA-Public Use
  Company Number: US-JNJFOC-20031004566

PATIENT
  Age: 79 Year
  Sex: Female
  Weight: 54 kg

DRUGS (9)
  1. REMICADE [Suspect]
     Indication: RHEUMATOID ARTHRITIS
     Dosage: 200 MG, 1 IN 1 DAY, INTRAVENOUS
     Route: 042
     Dates: start: 20031016
  2. PREDNISONE [Concomitant]
  3. METHOTREXATE [Concomitant]
  4. PERCOCET [Concomitant]
  5. PLAQUENIL [Concomitant]
  6. VIOXX [Concomitant]
  7. ZYRTEC [Concomitant]
  8. BENADRYL [Concomitant]
  9. TYLENOL [Concomitant]

REACTIONS (2)
  - BLOOD PRESSURE INCREASED [None]
  - HEADACHE [None]
